FAERS Safety Report 5909152-5 (Version None)
Quarter: 2008Q4

REPORT INFORMATION
  Report Type: 
  Country: None (occurrence: None)
  Receive Date: 20081001
  Receipt Date: 20080916
  Transmission Date: 20090506
  Serious: Yes (Other)
  Sender: FDA-Public Use
  Company Number: 20283

PATIENT
  Age: 47 Year
  Sex: Female

DRUGS (1)
  1. NIPENT [Suspect]
     Indication: GRAFT VERSUS HOST DISEASE

REACTIONS (2)
  - BLINDNESS [None]
  - LETHARGY [None]
